FAERS Safety Report 5917527-3 (Version None)
Quarter: 2008Q4

REPORT INFORMATION
  Report Type: 
  Country: None (occurrence: None)
  Receive Date: 20081010
  Receipt Date: 20081010
  Transmission Date: 20090506
  Serious: Yes (Life-Threatening, Other)
  Sender: FDA-Public Use
  Company Number: None

PATIENT
  Sex: Female
  Weight: 101.1521 kg

DRUGS (1)
  1. CHANTIX [Suspect]
     Indication: TOBACCO USER
     Dosage: 1MG TWICE A DAY PO
     Route: 048
     Dates: start: 20070416, end: 20070716

REACTIONS (5)
  - AGGRESSION [None]
  - ANGER [None]
  - DEPRESSED MOOD [None]
  - DEPRESSION [None]
  - SUICIDE ATTEMPT [None]
